FAERS Safety Report 21751457 (Version 1)
Quarter: 2022Q4

REPORT INFORMATION
  Report Type: Spontaneous
  Country: US (occurrence: US)
  Receive Date: 20221220
  Receipt Date: 20221220
  Transmission Date: 20230113
  Serious: No
  Sender: FDA-Public Use
  Company Number: US-BAUSCHBL-2022BNL000986

PATIENT
  Age: 53 Year
  Sex: Female

DRUGS (3)
  1. ALAWAY PRESERVATIVE FREE [Suspect]
     Active Substance: KETOTIFEN FUMARATE
     Indication: Eye allergy
     Route: 047
     Dates: start: 20221005
  2. LEVOTHYROXINE [Concomitant]
     Active Substance: LEVOTHYROXINE
     Indication: Product used for unknown indication
  3. PROGESTERONE [Concomitant]
     Active Substance: PROGESTERONE
     Indication: Product used for unknown indication

REACTIONS (3)
  - Instillation site irritation [Unknown]
  - Instillation site irritation [Unknown]
  - Extra dose administered [Unknown]

NARRATIVE: CASE EVENT DATE: 20221005
